FAERS Safety Report 8620035-2 (Version None)
Quarter: 2012Q3

REPORT INFORMATION
  Report Type: 
  Country: None (occurrence: None)
  Receive Date: 20120824
  Receipt Date: 20120823
  Transmission Date: 20120928
  Serious: Yes (Life-Threatening, Hospitalization, Other)
  Sender: FDA-Public Use
  Company Number: PHHY2010JP59439

PATIENT
  Sex: Male

DRUGS (35)
  1. CLOZARIL [Suspect]
     Dosage: 100 MG, QD
     Route: 048
     Dates: start: 20100820, end: 20100821
  2. CLOZARIL [Suspect]
     Dosage: 50 MG, QD
     Route: 048
     Dates: start: 20100921, end: 20100923
  3. CLOZARIL [Suspect]
     Dosage: 25 MG, QD
     Route: 048
     Dates: start: 20100924, end: 20100928
  4. HALOPERIDOL [Concomitant]
     Dosage: 5 MG
     Route: 048
     Dates: end: 20100930
  5. RISPERIDONE [Concomitant]
     Route: 048
  6. POTASSIUM CHLORIDE [Concomitant]
     Dosage: 500 ML
     Dates: start: 20100913, end: 20100920
  7. FAMOTIDINE [Concomitant]
     Dosage: 20 MG
     Dates: start: 20100921, end: 20100930
  8. PROMETHAZINE HCL [Concomitant]
     Dosage: 75 MG, UNK
     Dates: start: 20100914, end: 20100927
  9. OLANZAPINE [Concomitant]
     Dosage: 15 MG
     Route: 048
     Dates: end: 20101001
  10. LACTEC [Concomitant]
  11. MAGMITT KENEI [Concomitant]
     Dosage: 500 MG
     Dates: start: 20100913, end: 20100930
  12. HALOPERIDOL [Concomitant]
     Dosage: 2.5 MG
     Route: 048
     Dates: start: 20100921
  13. ARIPIPRAZOLE [Concomitant]
  14. PHYSIOSOL 3 [Concomitant]
     Dosage: 500 ML
     Dates: start: 20100921, end: 20100923
  15. CLOZARIL [Suspect]
     Dosage: 50 MG, QD
     Route: 048
     Dates: start: 20100815, end: 20100817
  16. CLOZARIL [Suspect]
     Dosage: 75 MG, QD
     Route: 048
     Dates: start: 20100818, end: 20100819
  17. CLOZARIL [Suspect]
     Dosage: 175 MG, QD
     Route: 048
     Dates: start: 20100828, end: 20100830
  18. CLOZARIL [Suspect]
     Dosage: 200 MG, QD
     Route: 048
     Dates: start: 20100913, end: 20100920
  19. OLANZAPINE [Concomitant]
     Dosage: 10 MG
     Route: 048
  20. QUETIAPINE FUMARATE [Concomitant]
     Route: 048
  21. PHYSIOSOL 3 [Concomitant]
     Dosage: 200 ML
     Dates: start: 20100919, end: 20100923
  22. SULBACTAM SODIUM [Concomitant]
     Dosage: 6 DF, UNK
     Dates: start: 20100919, end: 20100923
  23. AMOXICILLIN [Concomitant]
     Dosage: 750 MG
     Dates: start: 20101001, end: 20101003
  24. CLOZARIL [Suspect]
     Indication: SCHIZOPHRENIA, PARANOID TYPE
     Dosage: 12.5 MG, QD
     Route: 048
     Dates: start: 20100811, end: 20100811
  25. CLOZARIL [Suspect]
     Dosage: 150 MG, QD
     Dates: start: 20100825, end: 20100827
  26. CEFTRIAXONE SODIUM [Concomitant]
     Dosage: 2 DF, UNK
     Dates: start: 20100924, end: 20100930
  27. FLUNITRAZEPAM [Concomitant]
     Dosage: 2 MG
     Dates: start: 20100927, end: 20100930
  28. CLOZARIL [Suspect]
     Dosage: 25 MG, QD
     Route: 048
     Dates: start: 20100812, end: 20100814
  29. LEVOMEPROMAZINE MALEATE [Concomitant]
     Route: 048
  30. OLANZAPINE [Concomitant]
     Route: 048
  31. TPN ELECTROLYTES IN PLASTIC CONTAINER [Concomitant]
     Dosage: 1000 ML
     Dates: start: 20100920, end: 20100930
  32. M.V.I. [Concomitant]
     Dosage: UNK
     Dates: start: 20100916, end: 20100930
  33. CLOZARIL [Suspect]
     Dosage: 125 MG, QD
     Route: 048
     Dates: start: 20100822, end: 20100824
  34. CLOZARIL [Suspect]
     Dosage: 200 MG, QD
     Route: 048
     Dates: start: 20100831, end: 20100906
  35. CLOZARIL [Suspect]
     Dosage: 250 MG, QD
     Route: 048
     Dates: start: 20100907, end: 20100912

REACTIONS (9)
  - DEPRESSED LEVEL OF CONSCIOUSNESS [None]
  - PNEUMONIA ASPIRATION [None]
  - DYSPHAGIA [None]
  - BLOOD PRESSURE SYSTOLIC INCREASED [None]
  - SPUTUM INCREASED [None]
  - HALLUCINATION, AUDITORY [None]
  - SPUTUM RETENTION [None]
  - PYREXIA [None]
  - SEDATION [None]
